FAERS Safety Report 5151676-5 (Version None)
Quarter: 2006Q4

REPORT INFORMATION
  Report Type: 
  Country: None (occurrence: None)
  Receive Date: 20061115
  Receipt Date: 20061101
  Transmission Date: 20070319
  Serious: Yes (Other)
  Sender: FDA-Public Use
  Company Number: JP-ROCHE-470843

PATIENT
  Age: 22 Year
  Sex: Female

DRUGS (1)
  1. VESANOID [Suspect]
     Route: 048

REACTIONS (3)
  - ABORTION INDUCED [None]
  - ABORTION MISSED [None]
  - DRUG EXPOSURE DURING PREGNANCY [None]
